FAERS Safety Report 14582777 (Version 1)
Quarter: 2018Q1

REPORT INFORMATION
  Report Type: Spontaneous
  Country: CH (occurrence: CH)
  Receive Date: 20180228
  Receipt Date: 20180228
  Transmission Date: 20180509
  Serious: Yes (Hospitalization)
  Sender: FDA-Public Use
  Company Number: CH-ASTRAZENECA-2011SE35694

PATIENT
  Age: 65 Year
  Sex: Male

DRUGS (11)
  1. SEROQUEL [Suspect]
     Active Substance: QUETIAPINE FUMARATE
     Dosage: 950.0MG UNKNOWN
     Route: 048
     Dates: start: 20100404, end: 20100423
  2. SEROQUEL [Suspect]
     Active Substance: QUETIAPINE FUMARATE
     Dosage: 100.0MG UNKNOWN
     Route: 048
     Dates: start: 20100318, end: 20100319
  3. SEROQUEL [Suspect]
     Active Substance: QUETIAPINE FUMARATE
     Dosage: REDUCED DOSE UNKNOWN
     Route: 048
  4. DEPAKINE [Suspect]
     Active Substance: VALPROATE SODIUM
     Dosage: 300.0MG UNKNOWN
     Route: 048
     Dates: start: 20100423
  5. DIPIPERON [Suspect]
     Active Substance: PIPAMPERONE
     Dosage: 160.0MG UNKNOWN
     Route: 048
     Dates: start: 20100329, end: 20100424
  6. OLFEN [Suspect]
     Active Substance: DICLOFENAC SODIUM
     Dosage: 150.0MG UNKNOWN
     Route: 048
     Dates: start: 20100407, end: 20100414
  7. SEROQUEL [Suspect]
     Active Substance: QUETIAPINE FUMARATE
     Dosage: 400.0MG UNKNOWN
     Route: 048
     Dates: start: 20100323, end: 20100330
  8. DIPIPERON [Suspect]
     Active Substance: PIPAMPERONE
     Dosage: 80.0MG UNKNOWN
     Route: 048
     Dates: start: 20100320, end: 20100328
  9. SEROQUEL [Suspect]
     Active Substance: QUETIAPINE FUMARATE
     Dosage: 200.0MG UNKNOWN
     Route: 048
     Dates: start: 20100320, end: 20100322
  10. SEROQUEL [Suspect]
     Active Substance: QUETIAPINE FUMARATE
     Dosage: 650.0MG UNKNOWN
     Route: 048
     Dates: start: 20100331, end: 20100403
  11. DEPAKINE [Suspect]
     Active Substance: VALPROATE SODIUM
     Dosage: 150.0MG UNKNOWN
     Route: 048
     Dates: start: 20100323, end: 20100422

REACTIONS (1)
  - Neuroleptic malignant syndrome [Recovered/Resolved]

NARRATIVE: CASE EVENT DATE: 20100423
